FAERS Safety Report 25502792 (Version 1)
Quarter: 2025Q3

REPORT INFORMATION
  Report Type: Report from Study
  Country: US (occurrence: US)
  Receive Date: 20250702
  Receipt Date: 20250702
  Transmission Date: 20251021
  Serious: Yes (Hospitalization, Other)
  Sender: GILEAD
  Company Number: US-GILEAD-2025-0719083

PATIENT
  Sex: Female

DRUGS (1)
  1. AMBRISENTAN [Suspect]
     Active Substance: AMBRISENTAN
     Indication: Pulmonary hypertension
     Dosage: 10 MG ORALLY DAILY
     Route: 048
     Dates: start: 20250402

REACTIONS (3)
  - Cardiac failure acute [Unknown]
  - Hypervolaemia [Unknown]
  - Atrial flutter [Unknown]
